FAERS Safety Report 19413341 (Version 9)
Quarter: 2024Q3

REPORT INFORMATION
  Report Type: Spontaneous
  Country: US (occurrence: US)
  Receive Date: 20210614
  Receipt Date: 20240801
  Transmission Date: 20241016
  Serious: Yes (Hospitalization, Other)
  Sender: SANOFI AVENTIS
  Company Number: US-SA-SAC20210610001341

PATIENT
  Age: 38 Year
  Sex: Female

DRUGS (3)
  1. DUPIXENT [Suspect]
     Active Substance: DUPILUMAB
     Indication: Asthma
     Dosage: 200 MG, QOW
     Route: 058
     Dates: start: 201910
  2. DUPIXENT [Suspect]
     Active Substance: DUPILUMAB
     Indication: Chronic obstructive pulmonary disease
  3. DUPIXENT [Suspect]
     Active Substance: DUPILUMAB
     Indication: Asthma
     Dosage: 300 MG, QOW
     Dates: start: 20191022

REACTIONS (14)
  - Asthma [Unknown]
  - Dyspnoea [Unknown]
  - Hospitalisation [Unknown]
  - Pneumonia [Unknown]
  - Headache [Not Recovered/Not Resolved]
  - Contusion [Unknown]
  - Rash [Not Recovered/Not Resolved]
  - Infection [Not Recovered/Not Resolved]
  - Feeling hot [Not Recovered/Not Resolved]
  - Pyrexia [Not Recovered/Not Resolved]
  - Pruritus [Not Recovered/Not Resolved]
  - Asthma [Unknown]
  - Respiratory tract infection [Unknown]
  - Product use in unapproved indication [Unknown]

NARRATIVE: CASE EVENT DATE: 20191001
